FAERS Safety Report 4718481-2 (Version None)
Quarter: 2005Q3

REPORT INFORMATION
  Report Type: 
  Country: None (occurrence: None)
  Receive Date: 20050720
  Receipt Date: 20050624
  Transmission Date: 20060218
  Serious: Yes (Other)
  Sender: FDA-Public Use
  Company Number: PHEH2005US07132

PATIENT
  Sex: Male
  Weight: 5 kg

DRUGS (1)
  1. TRILEPTAL [Suspect]
     Route: 064

REACTIONS (1)
  - HYPOGLYCAEMIA NEONATAL [None]
